FAERS Safety Report 8191978-1 (Version None)
Quarter: 2012Q1

REPORT INFORMATION
  Report Type: 
  Country: None (occurrence: None)
  Receive Date: 20120307
  Receipt Date: 20120301
  Transmission Date: 20120608
  Serious: Yes (Other)
  Sender: FDA-Public Use
  Company Number: PHHY2012AU019389

PATIENT
  Sex: Female

DRUGS (2)
  1. GILENYA [Suspect]
     Dosage: UNK
     Route: 048
  2. ORAL CONTRACEPTIVE NOS [Interacting]

REACTIONS (2)
  - DRUG INTERACTION [None]
  - MATERNAL EXPOSURE DURING PREGNANCY [None]
